FAERS Safety Report 13559964 (Version 1)
Quarter: 2017Q2

REPORT INFORMATION
  Report Type: Spontaneous
  Country: FR (occurrence: FR)
  Receive Date: 20170518
  Receipt Date: 20170518
  Transmission Date: 20170830
  Serious: Yes (Hospitalization)
  Sender: FDA-Public Use
  Company Number: FR-CONCORDIA PHARMACEUTICALS INC.-GSH201705-002997

PATIENT
  Age: 52 Year
  Sex: Female

DRUGS (13)
  1. BETADINE [Suspect]
     Active Substance: POVIDONE-IODINE
     Indication: PARONYCHIA
     Route: 062
     Dates: start: 20170425, end: 20170427
  2. OGAST [Concomitant]
     Active Substance: LANSOPRAZOLE
  3. DOLIPRANE [Concomitant]
     Active Substance: ACETAMINOPHEN
     Indication: GAIT DISTURBANCE
  4. PREVISCAN [Concomitant]
     Active Substance: FLUINDIONE
     Indication: VENOUS THROMBOSIS
  5. OXYCONTIN [Concomitant]
     Active Substance: OXYCODONE HYDROCHLORIDE
  6. DESOGESTREL [Concomitant]
     Active Substance: DESOGESTREL
  7. PLAQUENIL [Suspect]
     Active Substance: HYDROXYCHLOROQUINE SULFATE
     Indication: RHEUMATIC DISORDER
     Route: 048
     Dates: start: 20170425, end: 20170427
  8. HYDROCORTISONE. [Concomitant]
     Active Substance: HYDROCORTISONE
     Indication: PROPHYLAXIS
     Dates: start: 20170425
  9. REMICADE [Concomitant]
     Active Substance: INFLIXIMAB
     Indication: RHEUMATIC DISORDER
     Dates: start: 20170331
  10. LEVOTHYROX [Concomitant]
     Active Substance: LEVOTHYROXINE
     Indication: HYPOTHYROIDISM
  11. CORTANCYL [Concomitant]
     Active Substance: PREDNISONE
  12. IRBESARTAN. [Concomitant]
     Active Substance: IRBESARTAN
     Indication: HYPERTENSION
  13. OXYNORM [Concomitant]
     Active Substance: OXYCODONE HYDROCHLORIDE

REACTIONS (2)
  - Face oedema [Recovering/Resolving]
  - Oedema peripheral [Recovering/Resolving]

NARRATIVE: CASE EVENT DATE: 20170427
